FAERS Safety Report 4413969-6 (Version None)
Quarter: 2004Q3

REPORT INFORMATION
  Report Type: 
  Country: None (occurrence: None)
  Receive Date: 20040802
  Receipt Date: 20040723
  Transmission Date: 20050211
  Serious: Yes (Death)
  Sender: FDA-Public Use
  Company Number: 04-07-1089

PATIENT
  Age: 51 Year
  Sex: Male
  Weight: 76 kg

DRUGS (1)
  1. FLUOXETINE [Suspect]
     Indication: DEPRESSION
     Dosage: 20MG ORAL
     Route: 048
     Dates: start: 20030828

REACTIONS (4)
  - COMPLETED SUICIDE [None]
  - INSOMNIA [None]
  - PERSONALITY CHANGE [None]
  - TREATMENT NONCOMPLIANCE [None]
